FAERS Safety Report 5253603-9 (Version None)
Quarter: 2007Q1

REPORT INFORMATION
  Report Type: 
  Country: None (occurrence: None)
  Receive Date: 20070301
  Receipt Date: 20070219
  Transmission Date: 20070707
  Serious: Yes (Hospitalization)
  Sender: FDA-Public Use
  Company Number: DE-PFIZER INC-2006153783

PATIENT

DRUGS (1)
  1. ZITHROMAX [Suspect]
     Dates: start: 20060101, end: 20060101

REACTIONS (1)
  - PSYCHOTIC DISORDER [None]
